FAERS Safety Report 19886745 (Version 2)
Quarter: 2021Q4

REPORT INFORMATION
  Report Type: Report from Study
  Country: US (occurrence: US)
  Receive Date: 20210928
  Receipt Date: 20211014
  Transmission Date: 20220303
  Serious: Yes (Other)
  Sender: FDA-Public Use
  Company Number: US-BEH-2021136237

PATIENT
  Age: 65 Year
  Sex: Female
  Weight: 90.25 kg

DRUGS (1)
  1. HIZENTRA [Suspect]
     Active Substance: HUMAN IMMUNOGLOBULIN G
     Indication: Immunodeficiency common variable
     Dosage: 15 GRAM, QW
     Route: 058
     Dates: start: 20100101

REACTIONS (4)
  - Renal impairment [Recovered/Resolved]
  - Infusion site erythema [Unknown]
  - Infusion site swelling [Unknown]
  - Infusion site pruritus [Unknown]

NARRATIVE: CASE EVENT DATE: 20210921
